FAERS Safety Report 7984490-3 (Version None)
Quarter: 2011Q4

REPORT INFORMATION
  Report Type: 
  Country: None (occurrence: None)
  Receive Date: 20111214
  Receipt Date: 20111205
  Transmission Date: 20120403
  Serious: Yes (Hospitalization, Other)
  Sender: FDA-Public Use
  Company Number: 2010JP001885

PATIENT
  Age: 7 Year
  Sex: Male

DRUGS (9)
  1. PROGRAF [Suspect]
     Indication: PROPHYLAXIS AGAINST GRAFT VERSUS HOST DISEASE
     Dosage: 0.03 MG/KG, /D
     Dates: start: 20091006
  2. ANTI-THYMOCYTE GLOBULIN NOS [Concomitant]
  3. CYTARABINE [Concomitant]
  4. THYMOGLOBULIN [Concomitant]
  5. PREDNISOLONE [Concomitant]
  6. PROGRAF [Suspect]
     Indication: PROPHYLAXIS AGAINST GRAFT VERSUS HOST DISEASE
     Dosage: ORAL
     Route: 048
  7. CYCLOPHOSPHAMIDE [Concomitant]
  8. G-CSF (GRANULOCYTE COLONY STIMULATING FACTOR) [Concomitant]
  9. METHOTREXATE [Concomitant]

REACTIONS (3)
  - ACUTE GRAFT VERSUS HOST DISEASE [None]
  - DRUG INEFFECTIVE [None]
  - CYTOMEGALOVIRUS VIRAEMIA [None]
